FAERS Safety Report 10905993 (Version 1)
Quarter: 2015Q1

REPORT INFORMATION
  Report Type: Spontaneous
  Country: US (occurrence: US)
  Receive Date: 20150311
  Receipt Date: 20150311
  Transmission Date: 20150721
  Serious: No
  Sender: FDA-Public Use
  Company Number: US-GLAXOSMITHKLINE-US2015005412

PATIENT
  Age: 73 Year
  Sex: Female

DRUGS (8)
  1. FLU VACCINE SOLUTION FOR INJECTION [Suspect]
     Active Substance: INFLUENZA VIRUS VACCINE
     Indication: PROPHYLAXIS
     Dates: start: 2011, end: 2011
  2. ADVAIR DISKUS [Suspect]
     Active Substance: FLUTICASONE PROPIONATE\SALMETEROL XINAFOATE
     Indication: EMPHYSEMA
     Dosage: 250/50 MCG
     Route: 055
     Dates: start: 200701
  3. ADVAIR DISKUS [Suspect]
     Active Substance: FLUTICASONE PROPIONATE\SALMETEROL XINAFOATE
  4. FLU VACCINE SOLUTION FOR INJECTION [Suspect]
     Active Substance: INFLUENZA VIRUS VACCINE
  5. ADVAIR DISKUS [Suspect]
     Active Substance: FLUTICASONE PROPIONATE\SALMETEROL XINAFOATE
     Dosage: 250/50 MCG
     Route: 055
     Dates: start: 200701
  6. ADVAIR DISKUS [Suspect]
     Active Substance: FLUTICASONE PROPIONATE\SALMETEROL XINAFOATE
  7. FLU VACCINE SOLUTION FOR INJECTION [Suspect]
     Active Substance: INFLUENZA VIRUS VACCINE
     Dates: start: 2011, end: 2011
  8. FLU VACCINE SOLUTION FOR INJECTION [Suspect]
     Active Substance: INFLUENZA VIRUS VACCINE

REACTIONS (3)
  - Dyspnoea [Not Recovered/Not Resolved]
  - Therapy change [Unknown]
  - Nasopharyngitis [Recovered/Resolved]

NARRATIVE: CASE EVENT DATE: 2007
